FAERS Safety Report 11617257 (Version 1)
Quarter: 2015Q4

REPORT INFORMATION
  Report Type: Spontaneous
  Country: US (occurrence: US)
  Receive Date: 20151009
  Receipt Date: 20151009
  Transmission Date: 20160304
  Serious: No
  Sender: FDA-Public Use
  Company Number: US-ACTELION PHARMACEUTICALS US, INC.-A-US2015-111014

PATIENT
  Age: 49 Year
  Sex: Female

DRUGS (3)
  1. VELETRI [Suspect]
     Active Substance: EPOPROSTENOL
     Indication: PULMONARY HYPERTENSION
     Dosage: 8 NG/KG, PER MIN
     Route: 042
     Dates: start: 20141222
  2. SILDENAFIL. [Concomitant]
     Active Substance: SILDENAFIL
  3. ADCIRCA [Concomitant]
     Active Substance: TADALAFIL

REACTIONS (21)
  - Catheter site pruritus [Unknown]
  - Feeling cold [Unknown]
  - Chest discomfort [Unknown]
  - Hypoaesthesia [Unknown]
  - Paraesthesia [Unknown]
  - Chronic obstructive pulmonary disease [Unknown]
  - Nausea [Unknown]
  - Catheter site pain [Unknown]
  - Device leakage [Unknown]
  - Device occlusion [Unknown]
  - Oedema peripheral [Unknown]
  - Device alarm issue [Unknown]
  - Myalgia [Unknown]
  - Catheter site erythema [Unknown]
  - Headache [Unknown]
  - Neuropathy peripheral [Unknown]
  - Urticaria [Unknown]
  - Pain in jaw [Unknown]
  - Diarrhoea [Unknown]
  - Catheter site warmth [Unknown]
  - Flushing [Unknown]

NARRATIVE: CASE EVENT DATE: 20150102
